FAERS Safety Report 23976779 (Version 1)
Quarter: 2024Q2

REPORT INFORMATION
  Report Type: Spontaneous
  Country: US (occurrence: US)
  Receive Date: 20240614
  Receipt Date: 20240614
  Transmission Date: 20240716
  Serious: No
  Sender: FDA-Public Use
  Company Number: US-BAYER-2024A084483

PATIENT
  Age: 32 Year
  Sex: Female

DRUGS (1)
  1. MIRENA [Suspect]
     Active Substance: LEVONORGESTREL
     Dosage: 20?G/DAY
     Route: 015
     Dates: start: 202001

REACTIONS (4)
  - Abdominal pain lower [None]
  - Vomiting [None]
  - Diarrhoea [None]
  - Genital haemorrhage [None]

NARRATIVE: CASE EVENT DATE: 20231230
